FAERS Safety Report 11730340 (Version 3)
Quarter: 2015Q4

REPORT INFORMATION
  Report Type: Spontaneous
  Country: US (occurrence: US)
  Receive Date: 20151112
  Receipt Date: 20151229
  Transmission Date: 20160304
  Serious: Yes (Hospitalization, Other)
  Sender: FDA-Public Use
  Company Number: US-UNITED THERAPEUTICS-UNT-2015-013273

PATIENT
  Age: 68 Year
  Sex: Female
  Weight: 84.81 kg

DRUGS (10)
  1. TYVASO [Suspect]
     Active Substance: TREPROSTINIL
     Indication: PULMONARY HYPERTENSION
     Dosage: 72 ?G, QID
     Dates: start: 20120301
  2. TYVASO [Suspect]
     Active Substance: TREPROSTINIL
     Dosage: 72 ?G, QID
     Dates: start: 20120901
  3. ORENITRAM [Suspect]
     Active Substance: TREPROSTINIL
     Dosage: 1 MG, TID
     Route: 048
  4. TRACLEER [Concomitant]
     Active Substance: BOSENTAN
     Indication: PRODUCT USED FOR UNKNOWN INDICATION
  5. ORENITRAM [Suspect]
     Active Substance: TREPROSTINIL
     Dosage: UNK
     Route: 048
  6. COUMADIN [Concomitant]
     Active Substance: WARFARIN SODIUM
     Indication: PRODUCT USED FOR UNKNOWN INDICATION
  7. TYVASO [Suspect]
     Active Substance: TREPROSTINIL
     Dosage: 18-54 ?G, QID
  8. ORENITRAM [Suspect]
     Active Substance: TREPROSTINIL
     Indication: PULMONARY HYPERTENSION
     Dosage: 0.626 MG, TID
     Route: 048
     Dates: start: 20151013
  9. ORENITRAM [Suspect]
     Active Substance: TREPROSTINIL
     Dosage: 1.75 MG, TID
     Route: 048
  10. ORENITRAM [Suspect]
     Active Substance: TREPROSTINIL
     Dosage: UNK
     Route: 048

REACTIONS (23)
  - Lower limb fracture [Unknown]
  - Palpitations [Unknown]
  - Panic attack [Unknown]
  - Product use issue [Unknown]
  - Anxiety [Unknown]
  - Depressed mood [Unknown]
  - Cough [Unknown]
  - Headache [Unknown]
  - Oxygen saturation decreased [Unknown]
  - Paraplegia [Unknown]
  - Blood pressure increased [Unknown]
  - Euphoric mood [Unknown]
  - Throat irritation [Unknown]
  - Sleep disorder [Unknown]
  - Urinary tract infection [Unknown]
  - Diarrhoea [Unknown]
  - Pulmonary arterial hypertension [Unknown]
  - Hot flush [Unknown]
  - Dyspnoea [Unknown]
  - International normalised ratio decreased [Unknown]
  - Decubitus ulcer [Unknown]
  - Fall [Unknown]
  - Pain [Unknown]

NARRATIVE: CASE EVENT DATE: 2015
